FAERS Safety Report 10404266 (Version 1)
Quarter: 2014Q1

REPORT INFORMATION
  Report Type: Spontaneous
  Country: US (occurrence: None)
  Receive Date: 20140131
  Receipt Date: 20140131
  Transmission Date: 20141002
  Serious: Yes (Hospitalization)
  Sender: FDA-Public Use
  Company Number: 079314

PATIENT
  Sex: Male
  Weight: 79.3 kg

DRUGS (1)
  1. KEPPRA [Suspect]
     Indication: CONVULSION
     Dates: start: 20130209

REACTIONS (2)
  - Epilepsy [None]
  - Inappropriate schedule of drug administration [None]
